FAERS Safety Report 12920588 (Version 1)
Quarter: 2016Q4

REPORT INFORMATION
  Report Type: Report from Study
  Country: KR (occurrence: KR)
  Receive Date: 20161108
  Receipt Date: 20161108
  Transmission Date: 20170207
  Serious: Yes (Death, Other)
  Sender: FDA-Public Use
  Company Number: KR-OTSUKA-2016_024950

PATIENT
  Age: 77 Year
  Sex: Male

DRUGS (1)
  1. CILOSTAZOL. [Suspect]
     Active Substance: CILOSTAZOL
     Indication: PERIPHERAL ARTERIAL OCCLUSIVE DISEASE
     Dosage: UNK
     Route: 065

REACTIONS (5)
  - Urinary retention [Unknown]
  - Acidosis [Unknown]
  - Urine output decreased [Unknown]
  - Peripheral arterial occlusive disease [Fatal]
  - Condition aggravated [Unknown]

NARRATIVE: CASE EVENT DATE: 20160215
